FAERS Safety Report 16887821 (Version 3)
Quarter: 2019Q4

REPORT INFORMATION
  Report Type: Spontaneous
  Country: CA (occurrence: CA)
  Receive Date: 20191005
  Receipt Date: 20191213
  Transmission Date: 20200122
  Serious: Yes (Life-Threatening, Hospitalization, Other)
  Sender: FDA-Public Use
  Company Number: CA-TEVA-2019-CA-1116022

PATIENT
  Age: 36 Year
  Sex: Male

DRUGS (7)
  1. CISPLATIN INJECTION [Suspect]
     Active Substance: CISPLATIN
     Indication: OROPHARYNGEAL SQUAMOUS CELL CARCINOMA
     Route: 065
  2. METHOTREXATE. [Suspect]
     Active Substance: METHOTREXATE
     Indication: RHEUMATOID ARTHRITIS
  3. FOLIC ACID. [Concomitant]
     Active Substance: FOLIC ACID
  4. CARBOPLATIN. [Suspect]
     Active Substance: CARBOPLATIN
     Indication: OROPHARYNGEAL SQUAMOUS CELL CARCINOMA
     Route: 065
  5. METHOTREXATE. [Suspect]
     Active Substance: METHOTREXATE
  6. CARBOPLATIN. [Suspect]
     Active Substance: CARBOPLATIN
     Indication: LIP AND/OR ORAL CAVITY CANCER
  7. CISPLATIN INJECTION [Suspect]
     Active Substance: CISPLATIN
     Indication: LIP AND/OR ORAL CAVITY CANCER

REACTIONS (7)
  - Streptococcal sepsis [Recovered/Resolved]
  - Erythema [Recovered/Resolved]
  - Hypotension [Recovered/Resolved]
  - Off label use [Recovered/Resolved]
  - Pyrexia [Recovered/Resolved]
  - Drug ineffective [Recovered/Resolved]
  - Treatment failure [Unknown]
